FAERS Safety Report 8208836 (Version 5)
Quarter: 2013Q3

REPORT INFORMATION
  Report Type: Spontaneous
  Country: CA (occurrence: CA)
  Receive Date: 20111028
  Receipt Date: 20130909
  Transmission Date: 20140515
  Serious: Yes (Hospitalization, Other)
  Sender: FDA-Public Use
  Company Number: CA-GENZYME-FABR-1002208

PATIENT
  Sex: 0

DRUGS (4)
  1. FABRAZYME [Suspect]
     Indication: FABRY^S DISEASE
     Dosage: 60 MG, Q2W
     Route: 042
     Dates: start: 20091125, end: 201010
  2. FABRAZYME [Suspect]
     Dosage: 0.98 MG/KG, Q2W
     Route: 042
     Dates: start: 20090909
  3. RYTHMODAN [Concomitant]
     Indication: PRODUCT USED FOR UNKNOWN INDICATION
     Dosage: UNK
     Route: 065
  4. METOPROLOL [Concomitant]
     Indication: PRODUCT USED FOR UNKNOWN INDICATION
     Dosage: 25 MG, Q12HR
     Route: 065

REACTIONS (2)
  - Clostridium difficile infection [Recovered/Resolved]
  - Tooth infection [Recovered/Resolved]
